FAERS Safety Report 21215610 (Version 1)
Quarter: 2022Q3

REPORT INFORMATION
  Report Type: Spontaneous
  Country: US (occurrence: US)
  Receive Date: 20220816
  Receipt Date: 20220816
  Transmission Date: 20221027
  Serious: No
  Sender: FDA-Public Use
  Company Number: US-Blueprint Medicines Corporation-335

PATIENT
  Sex: Male

DRUGS (1)
  1. AYVAKIT [Suspect]
     Active Substance: AVAPRITINIB
     Indication: Gastrointestinal stromal tumour
     Route: 048
     Dates: start: 20220705

REACTIONS (21)
  - Rash pruritic [Unknown]
  - Blood cholesterol increased [Unknown]
  - Vitamin D decreased [Unknown]
  - Jaw disorder [Unknown]
  - Swollen tongue [Unknown]
  - Glossodynia [Unknown]
  - Musculoskeletal stiffness [Unknown]
  - Trismus [Unknown]
  - Aphasia [Unknown]
  - Dyspepsia [Unknown]
  - Rash [Unknown]
  - Arthralgia [Unknown]
  - Nausea [Unknown]
  - Headache [Unknown]
  - Fatigue [Unknown]
  - Somnolence [Unknown]
  - Taste disorder [Unknown]
  - Amnesia [Unknown]
  - Periorbital oedema [Unknown]
  - Swelling face [Unknown]
  - Oedema peripheral [Unknown]
